FAERS Safety Report 5939197-0 (Version None)
Quarter: 2008Q4

REPORT INFORMATION
  Report Type: 
  Country: None (occurrence: None)
  Receive Date: 20081103
  Receipt Date: 20081029
  Transmission Date: 20090506
  Serious: Yes (Other)
  Sender: FDA-Public Use
  Company Number: ES-WYE-H05665808

PATIENT
  Sex: Male
  Weight: 73 kg

DRUGS (8)
  1. SIROLIMUS [Suspect]
     Indication: PROPHYLAXIS AGAINST TRANSPLANT REJECTION
     Route: 048
     Dates: start: 20080517, end: 20080820
  2. ACETYLSALICYLIC ACID SRT [Concomitant]
     Dosage: DOSE UNKNOWN
     Route: 065
     Dates: start: 20040204
  3. RAMIPRIL [Concomitant]
     Indication: HYPERTENSION
     Dosage: DOSE UNKNOWN
     Route: 065
     Dates: start: 20040806
  4. ATORVASTATIN [Concomitant]
     Indication: LIPIDS INCREASED
     Dosage: DOSE UNKNOWN
     Route: 065
     Dates: start: 20071211
  5. MYCOPHENOLATE MOFETIL [Concomitant]
     Indication: IMMUNOSUPPRESSANT DRUG THERAPY
     Route: 048
     Dates: start: 20080620, end: 20080820
  6. MYCOPHENOLATE MOFETIL [Concomitant]
     Route: 048
     Dates: start: 20080821
  7. PREDNISONE TAB [Concomitant]
     Indication: IMMUNOSUPPRESSANT DRUG THERAPY
     Route: 048
     Dates: start: 20071211, end: 20080820
  8. PREDNISONE TAB [Concomitant]
     Route: 048
     Dates: start: 20080821

REACTIONS (1)
  - HEART TRANSPLANT REJECTION [None]
